FAERS Safety Report 5218432-0 (Version None)
Quarter: 2007Q1

REPORT INFORMATION
  Report Type: 
  Country: None (occurrence: None)
  Receive Date: 20061130
  Receipt Date: 20060915
  Transmission Date: 20070707
  Serious: Yes (Hospitalization)
  Sender: FDA-Public Use
  Company Number: US200605006853

PATIENT
  Age: 55 Year
  Sex: Female
  Weight: 74.8 kg

DRUGS (1)
  1. ZYPREXA [Suspect]
     Indication: NERVOUSNESS
     Dates: start: 20020101, end: 20030101

REACTIONS (1)
  - PANCREATITIS [None]
